FAERS Safety Report 4302883-2 (Version None)
Quarter: 2004Q1

REPORT INFORMATION
  Report Type: 
  Country: None (occurrence: None)
  Receive Date: 20040223
  Receipt Date: 20040223
  Transmission Date: 20041129
  Serious: Yes (Other)
  Sender: FDA-Public Use
  Company Number: None

PATIENT
  Age: 39 Year
  Sex: Male
  Weight: 108.8633 kg

DRUGS (2)
  1. EFFEXOR XR [Suspect]
     Indication: ANXIETY
     Dates: start: 20000101, end: 20040220
  2. EFFEXOR XR [Suspect]
     Indication: DEPRESSION
     Dates: start: 20000101, end: 20040220

REACTIONS (8)
  - ANGER [None]
  - DIABETES MELLITUS [None]
  - DIZZINESS [None]
  - INSOMNIA [None]
  - IRRITABILITY [None]
  - MOOD SWINGS [None]
  - NIGHTMARE [None]
  - PARAESTHESIA [None]
